FAERS Safety Report 5495041-X (Version None)
Quarter: 2007Q4

REPORT INFORMATION
  Report Type: 
  Country: None (occurrence: None)
  Receive Date: 20071024
  Receipt Date: 20071010
  Transmission Date: 20080405
  Serious: Yes (Other)
  Sender: FDA-Public Use
  Company Number: US-SHR-US-2007-038387

PATIENT
  Age: 57 Year
  Sex: Female

DRUGS (11)
  1. CAMPATH [Suspect]
     Indication: CHRONIC LYMPHOCYTIC LEUKAEMIA RECURRENT
     Dosage: 30 MG, D 1,3,5/WK 1-2
     Route: 058
     Dates: start: 20070917
  2. CAMPATH [Suspect]
     Dosage: 45 MG, D 1,4/WK 3-4
     Route: 058
     Dates: start: 20071001
  3. CAMPATH [Suspect]
     Dosage: 60 MG, DAY 1/WKS 1-8
     Route: 058
     Dates: start: 20071001
  4. RITUXIMAB [Suspect]
     Indication: CHRONIC LYMPHOCYTIC LEUKAEMIA RECURRENT
     Dosage: 375 MG/M2, DAY 1/WKS 1-8
     Route: 042
     Dates: start: 20070917
  5. ACYCLOVIR [Concomitant]
     Indication: INFECTION PROPHYLAXIS
     Dosage: 400 MG, 3X/DAY
     Route: 048
  6. ALLOPURINOL [Concomitant]
  7. BACTRIM [Concomitant]
     Indication: INFECTION PROPHYLAXIS
     Dosage: UNK, 3X/WEEK
     Route: 048
  8. CALTRATE [Concomitant]
  9. M.V.I. [Concomitant]
  10. PREDNISONE [Concomitant]
  11. XALATAN [Concomitant]

REACTIONS (2)
  - ALANINE AMINOTRANSFERASE INCREASED [None]
  - ASPARTATE AMINOTRANSFERASE INCREASED [None]
